FAERS Safety Report 5717958-0 (Version None)
Quarter: 2008Q2

REPORT INFORMATION
  Report Type: 
  Country: None (occurrence: None)
  Receive Date: 20080425
  Receipt Date: 20080421
  Transmission Date: 20081010
  Serious: Yes (Other)
  Sender: FDA-Public Use
  Company Number: A0714120A

PATIENT
  Age: 77 Year
  Sex: Female
  Weight: 85.9 kg

DRUGS (4)
  1. SEREVENT [Suspect]
     Indication: ASTHMA
     Dosage: 1PUFF UNKNOWN
     Route: 055
  2. SEREVENT [Suspect]
     Dosage: 1PUFF UNKNOWN
     Route: 055
     Dates: start: 20080201
  3. ATROVENT [Suspect]
     Indication: ASTHMA
     Dosage: 1PUFF UNKNOWN
     Route: 055
  4. AZMACORT [Suspect]
     Indication: ASTHMA
     Dosage: 1PUFF UNKNOWN
     Route: 055

REACTIONS (2)
  - ASTHMA [None]
  - WHEEZING [None]
